FAERS Safety Report 18132916 (Version 1)
Quarter: 2020Q3

REPORT INFORMATION
  Report Type: Spontaneous
  Country: FR (occurrence: FR)
  Receive Date: 20200811
  Receipt Date: 20200811
  Transmission Date: 20201103
  Serious: Yes (Hospitalization)
  Sender: FDA-Public Use
  Company Number: FR-AUROBINDO-AUR-APL-2019-103866

PATIENT
  Age: 40 Year
  Sex: Male
  Weight: 58 kg

DRUGS (11)
  1. UPTRAVI [Suspect]
     Active Substance: SELEXIPAG
     Dosage: 600 MICROGRAM, TWO TIMES A DAY
     Route: 048
     Dates: start: 20190611
  2. PREVISCAN [Concomitant]
     Indication: PRODUCT USED FOR UNKNOWN INDICATION
     Dosage: UNK
     Route: 065
     Dates: start: 2008
  3. UPTRAVI [Suspect]
     Active Substance: SELEXIPAG
     Dosage: 400 MICROGRAM, TWO TIMES A DAY
     Route: 048
     Dates: start: 20190604
  4. UPTRAVI [Suspect]
     Active Substance: SELEXIPAG
     Dosage: 800 MICROGRAM, TWO TIMES A DAY
     Route: 048
     Dates: start: 20190616
  5. UPTRAVI [Suspect]
     Active Substance: SELEXIPAG
     Dosage: 1000 MICROGRAM, TWO TIMES A DAY
     Route: 048
     Dates: start: 20190625
  6. UPTRAVI [Suspect]
     Active Substance: SELEXIPAG
     Indication: PULMONARY ARTERIAL HYPERTENSION
     Dosage: 200 MICROGRAM, TWO TIMES A DAY (400 MICROGRAMS, ONCE A DAY)
     Route: 048
     Dates: start: 20190528
  7. BOSENTAN FILM COATED TABLETS [Suspect]
     Active Substance: BOSENTAN
     Indication: PULMONARY ARTERIAL HYPERTENSION
     Dosage: 125 MILLIGRAM, TWO TIMES A DAY (250 MILLIGRAMS, ONCE A DAY)
     Route: 048
     Dates: start: 2008
  8. SILDENAFIL. [Suspect]
     Active Substance: SILDENAFIL
     Indication: PULMONARY ARTERIAL HYPERTENSION
     Dosage: 20 MILLIGRAM, 3 TIMES A DAY (60 MILLIGRAMS, ONCE A DAY).
     Route: 065
     Dates: start: 2008
  9. UPTRAVI [Suspect]
     Active Substance: SELEXIPAG
     Dosage: 1400 MICROGRAM, TWO TIMES A DAY
     Route: 048
     Dates: start: 20190709
  10. UPTRAVI [Suspect]
     Active Substance: SELEXIPAG
     Dosage: 1600 MICROGRAM, TWO TIMES A DAY (3200 MICROGRAMS, ONCE A DAY)
     Route: 048
     Dates: start: 20190716
  11. UPTRAVI [Suspect]
     Active Substance: SELEXIPAG
     Dosage: 1200 MICROGRAM, TWO TIMES A DAY
     Route: 048
     Dates: start: 20190702

REACTIONS (4)
  - Therapeutic product effect incomplete [Unknown]
  - Depressed mood [Not Recovered/Not Resolved]
  - Dyspnoea [Unknown]
  - Hospitalisation [Unknown]
